FAERS Safety Report 8299357-3 (Version None)
Quarter: 2012Q2

REPORT INFORMATION
  Report Type: 
  Country: None (occurrence: None)
  Receive Date: 20120416
  Receipt Date: 20120416
  Transmission Date: 20120825
  Serious: No
  Sender: FDA-Public Use
  Company Number: None

PATIENT
  Age: 60 Year
  Sex: Male

DRUGS (11)
  1. BUPVIVICAINE [Concomitant]
  2. FENTANYL [Concomitant]
  3. OXYCONTIN [Concomitant]
  4. ISOFLURANE [Suspect]
     Dates: start: 20050221, end: 20050221
  5. ASPIRIN [Concomitant]
  6. PREVACID [Concomitant]
  7. PROPOFOL [Suspect]
     Dates: start: 20050221, end: 20050221
  8. MULTI-VITAMIN [Concomitant]
  9. VICODIN [Concomitant]
  10. COMPAZINE [Concomitant]
  11. HALCION [Concomitant]

REACTIONS (9)
  - ABDOMINAL PAIN UPPER [None]
  - LIVER DISORDER [None]
  - ABDOMINAL TENDERNESS [None]
  - SCRATCH [None]
  - NAUSEA [None]
  - MUSCULAR WEAKNESS [None]
  - HYPERTHYROIDISM [None]
  - HYPOAESTHESIA [None]
  - NERVE INJURY [None]
